FAERS Safety Report 17548362 (Version 1)
Quarter: 2020Q1

REPORT INFORMATION
  Report Type: Report from Study
  Country: None (occurrence: US)
  Receive Date: 20200317
  Receipt Date: 20200317
  Transmission Date: 20200409
  Serious: Yes (Other)
  Sender: FDA-Public Use
  Company Number: US-ABBVIE-20K-163-3321096-00

PATIENT
  Sex: Female

DRUGS (1)
  1. HUMIRA [Suspect]
     Active Substance: ADALIMUMAB
     Indication: RHEUMATOID ARTHRITIS
     Route: 058

REACTIONS (8)
  - Fall [Not Recovered/Not Resolved]
  - Clavicle fracture [Not Recovered/Not Resolved]
  - Neck pain [Recovered/Resolved]
  - Nephrolithiasis [Recovering/Resolving]
  - Rotator cuff syndrome [Not Recovered/Not Resolved]
  - Mobility decreased [Recovered/Resolved]
  - Neck injury [Recovered/Resolved]
  - Pain in extremity [Recovered/Resolved]
